FAERS Safety Report 8906656 (Version 2)
Quarter: 2012Q4

REPORT INFORMATION
  Report Type: Report from Study
  Country: ZA (occurrence: ZA)
  Receive Date: 20121114
  Receipt Date: 20121127
  Transmission Date: 20130627
  Serious: Yes (Other)
  Sender: FDA-Public Use
  Company Number: ZA-JNJFOC-20121102758

PATIENT
  Age: 50 Year
  Sex: Female
  Weight: 82 kg

DRUGS (5)
  1. STELARA [Suspect]
     Indication: PSORIASIS
     Route: 058
     Dates: end: 20120927
  2. STELARA [Suspect]
     Indication: PSORIASIS
     Dosage: 45 mg week 0,4, and then every 12 weeks
     Route: 058
     Dates: start: 20100721
  3. ENALAPRIL [Concomitant]
     Indication: HYPERTENSION
     Route: 048
  4. AMLODIPINE [Concomitant]
     Indication: HYPERTENSION
     Route: 048
  5. CARVEDILOL [Concomitant]
     Indication: HYPERTENSION
     Route: 048

REACTIONS (3)
  - Dermatitis psoriasiform [Recovering/Resolving]
  - Dermatitis exfoliative [Recovering/Resolving]
  - Eczema [Recovered/Resolved]
